FAERS Safety Report 22670665 (Version 5)
Quarter: 2024Q2

REPORT INFORMATION
  Report Type: Spontaneous
  Country: IT (occurrence: None)
  Receive Date: 20230705
  Receipt Date: 20240515
  Transmission Date: 20240716
  Serious: Yes (Other)
  Sender: FDA-Public Use
  Company Number: IT-ROCHE-3380571

PATIENT
  Age: 37 Year
  Sex: Female

DRUGS (2)
  1. OCREVUS [Suspect]
     Active Substance: OCRELIZUMAB
     Indication: Primary progressive multiple sclerosis
     Dosage: NEXT 300 MG INFUSION ON 21/MAR/2022
     Route: 042
     Dates: start: 20220307
  2. OCREVUS [Suspect]
     Active Substance: OCRELIZUMAB
     Dosage: THE LAST INFUSION OF OCRELIZUMAB: 22/MAR/2023.
     Route: 042
     Dates: start: 20220921

REACTIONS (3)
  - Malignant melanoma in situ [Unknown]
  - Maternal exposure before pregnancy [Unknown]
  - Gestational diabetes [Unknown]

NARRATIVE: CASE EVENT DATE: 20230401
